FAERS Safety Report 4416896-3 (Version None)
Quarter: 2004Q3

REPORT INFORMATION
  Report Type: 
  Country: None (occurrence: None)
  Receive Date: 20040806
  Receipt Date: 20030908
  Transmission Date: 20050211
  Serious: Yes (Hospitalization, Disabling, Other)
  Sender: FDA-Public Use
  Company Number: US-MERCK-0309USA00838

PATIENT
  Age: 77 Year
  Sex: Male
  Weight: 109 kg

DRUGS (5)
  1. ASPIRIN [Concomitant]
     Route: 065
  2. GLUCOSAMINE [Concomitant]
     Route: 065
  3. LEVOTHYROXINE SODIUM [Concomitant]
     Route: 065
  4. VIOXX [Suspect]
     Indication: OSTEOARTHRITIS
     Route: 048
     Dates: start: 20010101, end: 20011001
  5. HYTRIN [Concomitant]
     Route: 065

REACTIONS (19)
  - ATONIC URINARY BLADDER [None]
  - ATRIAL FIBRILLATION [None]
  - BRONCHOPNEUMONIA [None]
  - BURNS SECOND DEGREE [None]
  - CARDIAC FAILURE CONGESTIVE [None]
  - CORONARY ARTERY DISEASE [None]
  - DEAFNESS NEUROSENSORY [None]
  - DEPRESSION [None]
  - EMOTIONAL DISTRESS [None]
  - HAEMATURIA [None]
  - HAEMORRHAGIC STROKE [None]
  - INCONTINENCE [None]
  - INTENTIONAL SELF-INJURY [None]
  - LOBAR PNEUMONIA [None]
  - MYOCARDIAL INFARCTION [None]
  - MYOFASCIAL PAIN SYNDROME [None]
  - NEUROGENIC BLADDER [None]
  - STAPHYLOCOCCAL INFECTION [None]
  - SUICIDE ATTEMPT [None]
